FAERS Safety Report 8302866-1 (Version None)
Quarter: 2012Q2

REPORT INFORMATION
  Report Type: 
  Country: None (occurrence: None)
  Receive Date: 20120420
  Receipt Date: 20120418
  Transmission Date: 20120825
  Serious: Yes (Other)
  Sender: FDA-Public Use
  Company Number: HK-PFIZER INC-2012094260

PATIENT
  Sex: Female

DRUGS (1)
  1. LYRICA [Suspect]
     Dosage: 75 MG IN THE MORNING 100 MG AT NIGHT
     Dates: end: 20120401

REACTIONS (7)
  - HYPERHIDROSIS [None]
  - BLOOD URINE PRESENT [None]
  - SOMNOLENCE [None]
  - ASTHENIA [None]
  - MUSCULOSKELETAL STIFFNESS [None]
  - DRUG INEFFECTIVE [None]
  - DIZZINESS [None]
